FAERS Safety Report 10766927 (Version 2)
Quarter: 2016Q1

REPORT INFORMATION
  Report Type: Spontaneous
  Country: US (occurrence: US)
  Receive Date: 20150205
  Receipt Date: 20160203
  Transmission Date: 20160525
  Serious: Yes (Other)
  Sender: FDA-Public Use
  Company Number: US-BEH-2014046622

PATIENT
  Sex: Female
  Weight: 43 kg

DRUGS (2)
  1. ALBUMINAR-25 [Suspect]
     Active Substance: ALBUMIN (HUMAN)
     Indication: PARACENTESIS
  2. SOLU-MEDROL [Concomitant]
     Active Substance: METHYLPREDNISOLONE SODIUM SUCCINATE
     Route: 042

REACTIONS (8)
  - Rash [Unknown]
  - Hypotension [Unknown]
  - Angioedema [Unknown]
  - Anaphylactic reaction [Unknown]
  - Respiratory arrest [Unknown]
  - Unresponsive to stimuli [Unknown]
  - Dyspnoea [Unknown]
  - Hypersensitivity [Unknown]
